FAERS Safety Report 7470190-5 (Version None)
Quarter: 2011Q2

REPORT INFORMATION
  Report Type: 
  Country: None (occurrence: None)
  Receive Date: 20110510
  Receipt Date: 20090402
  Transmission Date: 20111010
  Serious: Yes (Hospitalization)
  Sender: FDA-Public Use
  Company Number: R0003523A

PATIENT
  Sex: Female

DRUGS (3)
  1. DUOVENT [Suspect]
     Indication: CHRONIC OBSTRUCTIVE PULMONARY DISEASE
     Dosage: 4PUFF PER DAY
     Route: 055
  2. FLU TRIVALENT SPLIT + AS03/2 [Suspect]
     Route: 030
     Dates: start: 20081004, end: 20081004
  3. SERETIDE [Suspect]
     Indication: CHRONIC OBSTRUCTIVE PULMONARY DISEASE
     Dosage: 2MCG PER DAY
     Route: 055

REACTIONS (1)
  - ASTHMA [None]
